FAERS Safety Report 10161818 (Version 1)
Quarter: 2014Q2

REPORT INFORMATION
  Report Type: Spontaneous
  Country: DE (occurrence: None)
  Receive Date: 20140507
  Receipt Date: 20140507
  Transmission Date: 20141212
  Serious: Yes (Hospitalization, Other)
  Sender: FDA-Public Use
  Company Number: 2014-19460

PATIENT
  Age: 61 Year
  Sex: Male

DRUGS (2)
  1. EYLEA [Suspect]
     Indication: DIABETIC RETINAL OEDEMA
     Dates: start: 20140212
  2. INSULIN [Concomitant]

REACTIONS (3)
  - Cerebral haemorrhage [None]
  - Oral disorder [None]
  - Asthenia [None]
